FAERS Safety Report 8927364 (Version 2)
Quarter: 2012Q4

REPORT INFORMATION
  Report Type: 
  Country: GB (occurrence: GB)
  Receive Date: 20121127
  Receipt Date: 20121228
  Transmission Date: 20130627
  Serious: Yes (Other)
  Sender: FDA-Public Use
  Company Number: GB-ROCHE-1160428

PATIENT
  Age: 37 Year
  Sex: Female
  Weight: 140 kg

DRUGS (6)
  1. XOLAIR [Suspect]
     Indication: ASTHMA
     Route: 058
     Dates: end: 20121106
  2. SYMBICORT [Concomitant]
     Dosage: 200/6
     Route: 065
     Dates: start: 2008
  3. UNIPHYLLIN [Concomitant]
     Route: 065
     Dates: start: 2009
  4. MONTELUKAST [Concomitant]
     Route: 065
     Dates: start: 2010
  5. FUROSEMIDE [Concomitant]
     Route: 065
     Dates: start: 2011
  6. MIRTAZAPINE [Concomitant]
     Route: 065
     Dates: start: 2012

REACTIONS (3)
  - Transient ischaemic attack [Recovered/Resolved]
  - Cerebrovascular accident [Unknown]
  - Weight increased [Unknown]
